FAERS Safety Report 7102739-6 (Version None)
Quarter: 2010Q4

REPORT INFORMATION
  Report Type: 
  Country: None (occurrence: None)
  Receive Date: 20101115
  Receipt Date: 20101103
  Transmission Date: 20110411
  Serious: Yes (Other)
  Sender: FDA-Public Use
  Company Number: PHHY2010BE55222

PATIENT
  Age: 84 Year
  Sex: Female

DRUGS (10)
  1. SANDOSTATIN [Suspect]
     Indication: CARCINOID SYNDROME
     Dosage: UNK
     Route: 058
  2. MARCUMAR [Concomitant]
     Indication: ATRIAL FIBRILLATION
     Dosage: 1.5 MG DAILY
  3. CITALOPRAM [Concomitant]
  4. BETASERC [Concomitant]
  5. ALDACTAZIDE [Concomitant]
  6. PERINDOPRIL ERBUMINE [Concomitant]
  7. LANOXIN [Concomitant]
  8. ZANTAC [Concomitant]
  9. PRAREDUCT [Concomitant]
  10. CALCIUM [Concomitant]

REACTIONS (4)
  - COAGULATION TIME PROLONGED [None]
  - DRUG INTERACTION [None]
  - INTERNATIONAL NORMALISED RATIO INCREASED [None]
  - PROTHROMBIN TIME SHORTENED [None]
